FAERS Safety Report 6577862-5 (Version None)
Quarter: 2010Q1

REPORT INFORMATION
  Report Type: 
  Country: None (occurrence: None)
  Receive Date: 20100211
  Receipt Date: 20100205
  Transmission Date: 20100710
  Serious: No
  Sender: FDA-Public Use
  Company Number: US-ROXANE LABORATORIES, INC.-2010-RO-00131RO

PATIENT
  Sex: Female

DRUGS (4)
  1. PREDNISONE [Suspect]
     Indication: INTERSTITIAL LUNG DISEASE
  2. PREDNISONE [Suspect]
     Indication: PRURITUS
  3. IMURAN [Suspect]
     Indication: INTERSTITIAL LUNG DISEASE
  4. IMURAN [Suspect]
     Indication: PRURITUS

REACTIONS (6)
  - ADVERSE DRUG REACTION [None]
  - CATARACT [None]
  - DIABETES MELLITUS [None]
  - IMPAIRED HEALING [None]
  - INTRAOCULAR PRESSURE INCREASED [None]
  - WEIGHT INCREASED [None]
